FAERS Safety Report 16527594 (Version 2)
Quarter: 2019Q3

REPORT INFORMATION
  Report Type: Spontaneous
  Country: GB (occurrence: GB)
  Receive Date: 20190703
  Receipt Date: 20190805
  Transmission Date: 20191004
  Serious: Yes (Hospitalization, Other)
  Sender: FDA-Public Use
  Company Number: GB-NAPPMUNDI-GBR-2019-0067686

PATIENT
  Age: 12 Year
  Sex: Female

DRUGS (10)
  1. PARACETAMOL [Suspect]
     Active Substance: ACETAMINOPHEN
     Dosage: 50 MG/KG, DAILY
     Route: 042
  2. KETAMINE                           /00171202/ [Suspect]
     Active Substance: KETAMINE
     Dosage: UNK (THE BACKGROUND INFUSION WAS INCREASED AGAIN TO 40 LG/KG EH AND THE LOCKOUT)
     Route: 051
  3. KETAMINE                           /00171202/ [Suspect]
     Active Substance: KETAMINE
     Dosage: UNK (40 LG/KG (1 ML) AND A LOCKOUT PERIOD OF 30 MIN)
     Route: 042
  4. KETAMINE                           /00171202/ [Suspect]
     Active Substance: KETAMINE
     Dosage: UNK (20 LG/KG)1/H)1 (0.5 ML/H)1)
     Route: 051
  5. KETAMINE                           /00171202/ [Suspect]
     Active Substance: KETAMINE
     Indication: ABDOMINAL PAIN
     Dosage: UNK, ((20LG/KG (0.5 INFUSION WAS THEN INCREASED TO 28 LG/KG (0.7 ML/H))
     Route: 051
  6. KETAMINE                           /00171202/ [Suspect]
     Active Substance: KETAMINE
     Dosage: UNK (20 LG/KG (0.5 ML/H 1 WITH A PCA BOLUS OF 40 LG/KG (1 ML), LOCKOUT PERIOD 20 MIN)
     Route: 051
  7. KETAMINE                           /00171202/ [Suspect]
     Active Substance: KETAMINE
     Dosage: UNK (BACKGROUND INFUSION WAS GRADUALLY DECREASED TO 4 LG/KG AND THE LOCKOUT PERIOD EXTENDED TO 15 M)
     Route: 051
  8. NON-PMN MORPHINE SULFATE [Suspect]
     Active Substance: MORPHINE SULFATE
     Indication: PAIN
     Dosage: UNK
     Route: 042
  9. PARACETAMOL [Suspect]
     Active Substance: ACETAMINOPHEN
     Indication: PAIN
     Dosage: 65 MG/KG, DAILY
     Route: 042
  10. KETAMINE                           /00171202/ [Suspect]
     Active Substance: KETAMINE
     Dosage: UNK (GRADUALLY INCREASED TO 40 LG/KG /H)
     Route: 051

REACTIONS (8)
  - Megacolon [Unknown]
  - Colitis ulcerative [Unknown]
  - Rectal haemorrhage [Unknown]
  - Condition aggravated [Unknown]
  - Drug ineffective [Not Recovered/Not Resolved]
  - Malaise [Unknown]
  - Pallor [Unknown]
  - Lethargy [Unknown]
